FAERS Safety Report 5376449-X (Version None)
Quarter: 2007Q2

REPORT INFORMATION
  Report Type: 
  Country: None (occurrence: None)
  Receive Date: 20070627
  Receipt Date: 20060627
  Transmission Date: 20071010
  Serious: Yes (Other)
  Sender: FDA-Public Use
  Company Number: 2006058173

PATIENT
  Sex: Female
  Weight: 90.7194 kg

DRUGS (10)
  1. NICOTROL [Suspect]
     Indication: SMOKING CESSATION THERAPY
     Dosage: 3 CARTRIDGES DAILY, THEN 1 DAILY; INHALATION
     Route: 055
     Dates: start: 19990711
  2. WARFARIN SODIUM [Concomitant]
  3. METOPROLOL SUCCINATE [Concomitant]
  4. POTASSIUM CHLORIDE [Concomitant]
  5. PAROXETINE HCL [Concomitant]
  6. CONJUGATED ESTROGENS [Concomitant]
  7. PRAVASTATIN [Concomitant]
  8. LEVOTHYROXINE SODIUM [Concomitant]
  9. FUROSEMIDE [Concomitant]
  10. CETIRIZINE HCL [Concomitant]

REACTIONS (3)
  - DRUG DEPENDENCE [None]
  - DRUG INEFFECTIVE [None]
  - INCORRECT DRUG ADMINISTRATION DURATION [None]
